FAERS Safety Report 16213121 (Version 2)
Quarter: 2019Q2

REPORT INFORMATION
  Report Type: Report from Study
  Country: US (occurrence: US)
  Receive Date: 20190418
  Receipt Date: 20190425
  Transmission Date: 20190711
  Serious: Yes (Hospitalization, Other)
  Sender: FDA-Public Use
  Company Number: US-BAYER-2019-053546

PATIENT
  Age: 62 Year
  Sex: Male

DRUGS (3)
  1. NORCO [Concomitant]
     Active Substance: ACETAMINOPHEN\HYDROCODONE BITARTRATE
     Dosage: 10MG/325 MG EVERY 6 HOURS
  2. STIVARGA [Suspect]
     Active Substance: REGORAFENIB
     Indication: GASTROINTESTINAL STROMAL TUMOUR
     Dosage: DAILY DOSE 160 MG (1-40 MG TABLET EVERY 6 HOURS WITHOUT FOOD OR DRUG RESTRICTIONS)
     Route: 048
     Dates: start: 20190304, end: 20190305
  3. STIVARGA [Suspect]
     Active Substance: REGORAFENIB
     Indication: RECTAL CANCER
     Dosage: 160 MG, QD FOR 21 DAYS THEN OFF FOR 7 DAYS
     Route: 048
     Dates: start: 20190313, end: 20190320

REACTIONS (11)
  - Asthenia [None]
  - Wrong technique in product usage process [None]
  - Thrombosis [None]
  - Nausea [None]
  - Asthenia [None]
  - Headache [Not Recovered/Not Resolved]
  - Vomiting [Not Recovered/Not Resolved]
  - Pelvic neoplasm [None]
  - Fatigue [None]
  - Dizziness [Not Recovered/Not Resolved]
  - Off label use [None]

NARRATIVE: CASE EVENT DATE: 201903
